FAERS Safety Report 22051300 (Version 1)
Quarter: 2023Q1

REPORT INFORMATION
  Report Type: Report from Study
  Country: US (occurrence: US)
  Receive Date: 20230301
  Receipt Date: 20230301
  Transmission Date: 20230418
  Serious: No
  Sender: FDA-Public Use
  Company Number: US-INCYTE CORPORATION-2023IN000649

PATIENT

DRUGS (1)
  1. JAKAFI [Suspect]
     Active Substance: RUXOLITINIB
     Indication: Graft versus host disease
     Dosage: 10 MILLIGRAM, BID
     Route: 065

REACTIONS (10)
  - Bone pain [Unknown]
  - Arthralgia [Unknown]
  - Muscular weakness [Unknown]
  - Sleep disorder [Unknown]
  - Pain in jaw [Unknown]
  - Plantar fasciitis [Unknown]
  - Product availability issue [Unknown]
  - Wrong technique in product usage process [Unknown]
  - Intentional product use issue [Unknown]
  - Fatigue [Unknown]

NARRATIVE: CASE EVENT DATE: 20230101
